FAERS Safety Report 7780437-3 (Version None)
Quarter: 2011Q3

REPORT INFORMATION
  Report Type: 
  Country: None (occurrence: None)
  Receive Date: 20110927
  Receipt Date: 20110125
  Transmission Date: 20111222
  Serious: No
  Sender: FDA-Public Use
  Company Number: US-ASTRAZENECA-2010SE30141

PATIENT
  Age: 13447 Day
  Sex: Female
  Weight: 70.3 kg

DRUGS (13)
  1. SEROQUEL [Suspect]
     Indication: BIPOLAR I DISORDER
     Route: 048
     Dates: start: 20060101, end: 20110101
  2. LEVOTHYROXINE SODIUM [Concomitant]
     Indication: BASEDOW'S DISEASE
     Route: 048
  3. SEROQUEL [Suspect]
     Route: 048
     Dates: end: 20100614
  4. SEROQUEL [Suspect]
     Route: 048
     Dates: start: 20100614
  5. ABILIFY [Concomitant]
     Indication: DEPRESSION
     Route: 048
  6. DHA FISH OIL [Concomitant]
     Route: 048
  7. SEROQUEL [Suspect]
     Route: 048
     Dates: end: 20100614
  8. VYVANSE [Concomitant]
     Indication: ATTENTION DEFICIT/HYPERACTIVITY DISORDER
     Route: 048
  9. SEROQUEL [Suspect]
     Indication: BIPOLAR II DISORDER
     Route: 048
     Dates: start: 20060101, end: 20110101
  10. ZOLOFT [Concomitant]
     Indication: DEPRESSION
     Route: 048
  11. VITAMIN TAB [Concomitant]
     Route: 048
  12. SEROQUEL [Suspect]
     Route: 048
     Dates: start: 20100614
  13. LAMICTAL [Concomitant]
     Indication: DEPRESSION
     Route: 048

REACTIONS (8)
  - MOOD SWINGS [None]
  - DRUG DOSE OMISSION [None]
  - MATERNAL EXPOSURE DURING PREGNANCY [None]
  - DISTURBANCE IN ATTENTION [None]
  - HISTRIONIC PERSONALITY DISORDER [None]
  - CRYING [None]
  - AGGRESSION [None]
  - INSOMNIA [None]
